FAERS Safety Report 13940271 (Version 3)
Quarter: 2017Q4

REPORT INFORMATION
  Report Type: Report from Study
  Country: US (occurrence: US)
  Receive Date: 20170906
  Receipt Date: 20171213
  Transmission Date: 20180320
  Serious: Yes (Hospitalization)
  Sender: FDA-Public Use
  Company Number: US-EISAI MEDICAL RESEARCH-EC-2017-030861

PATIENT
  Age: 72 Year
  Sex: Female
  Weight: 75.8 kg

DRUGS (30)
  1. LENVATINIB [Suspect]
     Active Substance: LENVATINIB
     Route: 048
     Dates: start: 201708, end: 201708
  2. MAGNESIUM AMINO ACIDS CHELATE [Concomitant]
  3. MS CONTIN [Concomitant]
     Active Substance: MORPHINE SULFATE
  4. ALPHAGAN P [Concomitant]
     Active Substance: BRIMONIDINE TARTRATE
  5. GABAPENTIN. [Concomitant]
     Active Substance: GABAPENTIN
  6. HYDROMORPHONE [Concomitant]
     Active Substance: HYDROMORPHONE
  7. DOCUSATE SODIUM. [Concomitant]
     Active Substance: DOCUSATE SODIUM
  8. PROBIOTIC [Concomitant]
     Active Substance: PROBIOTICS NOS
  9. VITAMIN D3 [Concomitant]
     Active Substance: CHOLECALCIFEROL
  10. MORPHINE [Concomitant]
     Active Substance: MORPHINE
  11. PEMBROLIZUMAB. [Suspect]
     Active Substance: PEMBROLIZUMAB
     Indication: ENDOMETRIAL CANCER
     Route: 041
     Dates: start: 20170724, end: 20170815
  12. LORAZEPAM. [Concomitant]
     Active Substance: LORAZEPAM
  13. LEVOTHYROXINE. [Concomitant]
     Active Substance: LEVOTHYROXINE
  14. PREDNISONE. [Concomitant]
     Active Substance: PREDNISONE
  15. PEMBROLIZUMAB. [Suspect]
     Active Substance: PEMBROLIZUMAB
     Route: 041
     Dates: start: 2017, end: 20170921
  16. ASPIRIN. [Concomitant]
     Active Substance: ASPIRIN
  17. ZOLPIDEM [Concomitant]
     Active Substance: ZOLPIDEM\ZOLPIDEM TARTRATE
  18. TOPIRAMATE. [Concomitant]
     Active Substance: TOPIRAMATE
  19. LENVATINIB [Suspect]
     Active Substance: LENVATINIB
     Indication: ENDOMETRIAL CANCER
     Route: 048
     Dates: start: 20170724, end: 201708
  20. LENVATINIB [Suspect]
     Active Substance: LENVATINIB
     Route: 048
     Dates: start: 2017, end: 20171013
  21. ATORVASTATIN [Concomitant]
     Active Substance: ATORVASTATIN
  22. JANUMET [Concomitant]
     Active Substance: METFORMIN HYDROCHLORIDE\SITAGLIPTIN PHOSPHATE
  23. ONDANSETRON [Concomitant]
     Active Substance: ONDANSETRON
  24. TRAVOPROST. [Concomitant]
     Active Substance: TRAVOPROST
  25. AMLODIPINE [Concomitant]
     Active Substance: AMLODIPINE BESYLATE
  26. IMODIUM [Concomitant]
     Active Substance: LOPERAMIDE HYDROCHLORIDE
  27. LOSARTAN. [Concomitant]
     Active Substance: LOSARTAN
  28. CAPTOPRIL. [Concomitant]
     Active Substance: CAPTOPRIL
  29. CITALOPRAM [Concomitant]
     Active Substance: CITALOPRAM HYDROBROMIDE
  30. PANTOPRAZOLE [Concomitant]
     Active Substance: PANTOPRAZOLE

REACTIONS (4)
  - Neuropathy peripheral [Not Recovered/Not Resolved]
  - Encephalopathy [Recovered/Resolved]
  - Confusional state [Recovering/Resolving]
  - Acute kidney injury [Recovered/Resolved]

NARRATIVE: CASE EVENT DATE: 20170822
